FAERS Safety Report 12424253 (Version 1)
Quarter: 2016Q2

REPORT INFORMATION
  Report Type: Spontaneous
  Country: US (occurrence: None)
  Receive Date: 20160531
  Receipt Date: 20160531
  Transmission Date: 20160815
  Serious: Yes (Hospitalization)
  Sender: FDA-Public Use
  Company Number: None

PATIENT
  Age: 87 Year
  Sex: Male
  Weight: 81.6 kg

DRUGS (1)
  1. RIVAROXABAN [Suspect]
     Active Substance: RIVAROXABAN
     Indication: ATRIAL FIBRILLATION
     Route: 048
     Dates: start: 20160510, end: 20160511

REACTIONS (7)
  - Anal incontinence [None]
  - Blood pressure diastolic decreased [None]
  - Small intestinal haemorrhage [None]
  - Anaemia [None]
  - Mass [None]
  - International normalised ratio abnormal [None]
  - Diarrhoea [None]

NARRATIVE: CASE EVENT DATE: 20160511
